FAERS Safety Report 17469556 (Version 1)
Quarter: 2020Q1

REPORT INFORMATION
  Report Type: Spontaneous
  Country: US (occurrence: US)
  Receive Date: 20200227
  Receipt Date: 20200227
  Transmission Date: 20200409
  Serious: Yes (Other)
  Sender: FDA-Public Use
  Company Number: US-AMERICAN REGENT INC-2020000448

PATIENT
  Age: 91 Year
  Sex: Female
  Weight: 50.79 kg

DRUGS (12)
  1. INJECTAFER [Suspect]
     Active Substance: FERRIC CARBOXYMALTOSE
     Dosage: 750 MILLIGRAM IN SODIUM CHLORIDE 0.9% 250 ML
     Route: 042
     Dates: start: 20181231, end: 20181231
  2. INJECTAFER [Suspect]
     Active Substance: FERRIC CARBOXYMALTOSE
     Dosage: 750 MILLIGRAM IN SODIUM CHLORIDE 0.9% 250 ML
     Route: 042
     Dates: start: 20190325, end: 20190325
  3. INJECTAFER [Suspect]
     Active Substance: FERRIC CARBOXYMALTOSE
     Dosage: 750 MILLIGRAM IN SODIUM CHLORIDE 0.9% 250 ML
     Route: 042
     Dates: start: 20180803, end: 20180803
  4. INJECTAFER [Suspect]
     Active Substance: FERRIC CARBOXYMALTOSE
     Dosage: 750 MILLIGRAM IN SODIUM CHLORIDE 0.9% 250 ML
     Route: 042
     Dates: start: 20181025, end: 20181025
  5. INJECTAFER [Suspect]
     Active Substance: FERRIC CARBOXYMALTOSE
     Dosage: 750 MILLIGRAM IN SODIUM CHLORIDE 0.9% 250 ML
     Route: 042
     Dates: start: 20200102, end: 20200102
  6. FUROSEMIDE. [Concomitant]
     Active Substance: FUROSEMIDE
     Indication: PRODUCT USED FOR UNKNOWN INDICATION
     Dosage: 20 MILLIGRAM, QD
     Route: 065
  7. INJECTAFER [Suspect]
     Active Substance: FERRIC CARBOXYMALTOSE
     Dosage: 750 MILLIGRAM IN SODIUM CHLORIDE 0.9% 250 ML
     Route: 042
     Dates: start: 20180517, end: 20180517
  8. INJECTAFER [Suspect]
     Active Substance: FERRIC CARBOXYMALTOSE
     Dosage: 750 MILLIGRAM IN SODIUM CHLORIDE 0.9% 250 ML
     Route: 042
     Dates: start: 20190604, end: 20190604
  9. INJECTAFER [Suspect]
     Active Substance: FERRIC CARBOXYMALTOSE
     Dosage: 750 MILLIGRAM IN SODIUM CHLORIDE 0.9% 250 ML
     Route: 042
     Dates: start: 20180907, end: 20180907
  10. INJECTAFER [Suspect]
     Active Substance: FERRIC CARBOXYMALTOSE
     Dosage: 750 MILLIGRAM IN SODIUM CHLORIDE 0.9% 250 ML
     Route: 042
     Dates: start: 20191030, end: 20191030
  11. INJECTAFER [Suspect]
     Active Substance: FERRIC CARBOXYMALTOSE
     Dosage: 750 MILLIGRAM IN SODIUM CHLORIDE 0.9% 250 ML
     Route: 042
     Dates: start: 20190814, end: 20190814
  12. INJECTAFER [Suspect]
     Active Substance: FERRIC CARBOXYMALTOSE
     Indication: IRON DEFICIENCY ANAEMIA
     Dosage: 750 MILLIGRAM IN SODIUM CHLORIDE 0.9% 250 ML
     Route: 042
     Dates: start: 20180316, end: 20180316

REACTIONS (2)
  - Serum ferritin increased [Unknown]
  - Hypophosphataemia [Unknown]

NARRATIVE: CASE EVENT DATE: 20200130
